FAERS Safety Report 5718908-3 (Version None)
Quarter: 2008Q2

REPORT INFORMATION
  Report Type: 
  Country: None (occurrence: None)
  Receive Date: 20080425
  Receipt Date: 20080418
  Transmission Date: 20081010
  Serious: Yes (Other)
  Sender: FDA-Public Use
  Company Number: US-PFIZER INC-2008034581

PATIENT
  Sex: Female

DRUGS (8)
  1. XALATAN [Suspect]
  2. DETROL LA [Concomitant]
  3. BETIMOL [Concomitant]
  4. CRESTOR [Concomitant]
  5. LASIX [Concomitant]
  6. POTASSIUM CHLORIDE [Concomitant]
  7. NEXIUM [Concomitant]
  8. CARTIA XT [Concomitant]

REACTIONS (2)
  - BLINDNESS [None]
  - EYE IRRITATION [None]
